FAERS Safety Report 7957390-2 (Version None)
Quarter: 2011Q4

REPORT INFORMATION
  Report Type: 
  Country: None (occurrence: None)
  Receive Date: 20111205
  Receipt Date: 20111130
  Transmission Date: 20120403
  Serious: Yes (Hospitalization, Disabling)
  Sender: FDA-Public Use
  Company Number: US-MERCK-1103USA03206

PATIENT
  Age: 62 Year
  Sex: Female
  Weight: 53 kg

DRUGS (21)
  1. VAGIFEM [Concomitant]
     Route: 067
  2. FOSAMAX [Suspect]
     Indication: OSTEOPENIA
     Route: 048
     Dates: start: 19971101, end: 20100224
  3. HORMONES (UNSPECIFIED) [Concomitant]
     Route: 065
     Dates: start: 19880101, end: 20090101
  4. FLUTICASONE [Concomitant]
     Route: 065
     Dates: start: 20100201
  5. FOSAMAX [Suspect]
     Indication: OSTEOPOROSIS PROPHYLAXIS
     Route: 048
     Dates: start: 19971101, end: 20100224
  6. ALENDRONATE SODIUM [Suspect]
     Route: 048
     Dates: start: 20090407, end: 20090922
  7. CALCIUM (UNSPECIFIED) AND VITAMIN D (UNSPECIFIED) [Concomitant]
     Route: 065
     Dates: start: 19900101
  8. PREMARIN [Concomitant]
     Route: 067
  9. HOMEOPATHIC MEDICATIONS (UNSPECIFIED) [Concomitant]
     Route: 065
  10. [THERAPY UNSPECIFIED] [Concomitant]
     Route: 065
     Dates: start: 19940101, end: 20040101
  11. FOSAMAX [Suspect]
     Route: 048
     Dates: start: 19981111
  12. IBUPROFEN [Concomitant]
     Route: 065
  13. ALENDRONATE SODIUM [Suspect]
     Route: 048
     Dates: start: 20091212
  14. DAYPRO [Concomitant]
     Route: 065
     Dates: start: 20100201
  15. ALENDRONATE SODIUM [Suspect]
     Indication: OSTEOPENIA
     Route: 048
     Dates: start: 20080404, end: 20081213
  16. OSTEO-BI-FLEX [Concomitant]
     Route: 048
     Dates: start: 19900101
  17. FOSAMAX [Suspect]
     Route: 048
     Dates: start: 19981111
  18. VITAMINS (UNSPECIFIED) [Concomitant]
     Route: 065
     Dates: start: 19900101
  19. PREDNISONE [Concomitant]
     Route: 065
  20. OMEGA-3 MARINE TRIGLYCERIDES [Concomitant]
     Route: 065
     Dates: start: 20100101
  21. CORTICOSTEROIDS (UNSPECIFIED) [Concomitant]
     Route: 065
     Dates: start: 19990101, end: 20090101

REACTIONS (23)
  - ANAEMIA POSTOPERATIVE [None]
  - BONE LOSS [None]
  - GINGIVAL RECESSION [None]
  - FEMUR FRACTURE [None]
  - STRESS FRACTURE [None]
  - RHINITIS ALLERGIC [None]
  - ROTATOR CUFF SYNDROME [None]
  - DRUG INEFFECTIVE [None]
  - TOOTH FRACTURE [None]
  - SCOLIOSIS [None]
  - TOOTH DISORDER [None]
  - TONSILLAR DISORDER [None]
  - OSTEOARTHRITIS [None]
  - MERALGIA PARAESTHETICA [None]
  - LYMPHADENOPATHY [None]
  - VULVOVAGINAL MYCOTIC INFECTION [None]
  - CARPAL TUNNEL SYNDROME [None]
  - SCIATICA [None]
  - FIBROCYSTIC BREAST DISEASE [None]
  - LOW TURNOVER OSTEOPATHY [None]
  - OSTEOPOROSIS [None]
  - POLYMYALGIA RHEUMATICA [None]
  - VIRAL UPPER RESPIRATORY TRACT INFECTION [None]
